FAERS Safety Report 9431985 (Version 1)
Quarter: 2013Q3

REPORT INFORMATION
  Report Type: Spontaneous
  Country: PL (occurrence: PL)
  Receive Date: 20130731
  Receipt Date: 20130731
  Transmission Date: 20140515
  Serious: Yes (Other)
  Sender: FDA-Public Use
  Company Number: PL-JNJFOC-20130712589

PATIENT
  Age: 72 Year
  Sex: Male

DRUGS (3)
  1. ABIRATERONE [Suspect]
     Indication: PROSTATE CANCER
     Dosage: (4 X 250 MG TABLETS)
     Route: 048
     Dates: start: 201211
  2. ENCORTON [Concomitant]
     Route: 065
  3. GOSERELIN [Concomitant]
     Route: 065

REACTIONS (2)
  - Heat stroke [Recovered/Resolved]
  - Quality of life decreased [Recovered/Resolved]
